FAERS Safety Report 21262477 (Version 1)
Quarter: 2022Q3

REPORT INFORMATION
  Report Type: Report from Study
  Country: US (occurrence: US)
  Receive Date: 20220828
  Receipt Date: 20220828
  Transmission Date: 20221026
  Serious: Yes (Hospitalization)
  Sender: FDA-Public Use
  Company Number: US-Accord-274898

PATIENT
  Age: 48 Year
  Sex: Female
  Weight: 99.79 kg

DRUGS (1)
  1. CLOZAPINE [Suspect]
     Active Substance: CLOZAPINE
     Indication: Schizoaffective disorder
     Dosage: 350MG / NIGHTLY

REACTIONS (3)
  - Abnormal behaviour [Unknown]
  - Delusion [Unknown]
  - Treatment noncompliance [Unknown]
